FAERS Safety Report 19936210 (Version 1)
Quarter: 2021Q4

REPORT INFORMATION
  Report Type: Spontaneous
  Country: ES (occurrence: ES)
  Receive Date: 20211008
  Receipt Date: 20211008
  Transmission Date: 20220303
  Serious: Yes (Hospitalization, Other)
  Sender: FDA-Public Use
  Company Number: ES-ACCORD-238838

PATIENT
  Age: 26 Year
  Sex: Female

DRUGS (10)
  1. VENETOCLAX [Interacting]
     Active Substance: VENETOCLAX
     Indication: Acute myeloid leukaemia
     Route: 048
     Dates: start: 202010, end: 2020
  2. VENETOCLAX [Interacting]
     Active Substance: VENETOCLAX
     Route: 048
     Dates: start: 2020
  3. VENETOCLAX [Interacting]
     Active Substance: VENETOCLAX
     Route: 048
     Dates: start: 2021, end: 2021
  4. VENETOCLAX [Interacting]
     Active Substance: VENETOCLAX
     Route: 048
     Dates: start: 2021, end: 2021
  5. VENETOCLAX [Interacting]
     Active Substance: VENETOCLAX
     Route: 048
     Dates: start: 2021
  6. POSACONAZOLE [Interacting]
     Active Substance: POSACONAZOLE
     Indication: Antifungal prophylaxis
     Route: 065
     Dates: start: 202007, end: 2020
  7. POSACONAZOLE [Interacting]
     Active Substance: POSACONAZOLE
     Dosage: POSACONAZOLE WAS REINSTATED
     Route: 065
     Dates: start: 202011
  8. AZACITIDINE [Suspect]
     Active Substance: AZACITIDINE
     Indication: Acute myeloid leukaemia
     Dosage: 17 OF EACH 28-DAY CYCLE
     Route: 065
     Dates: start: 202007, end: 202007
  9. AZACITIDINE [Suspect]
     Active Substance: AZACITIDINE
     Route: 065
     Dates: start: 202010, end: 2020
  10. AZACITIDINE [Suspect]
     Active Substance: AZACITIDINE
     Dosage: RESTART AZA+VEN TREATMENT (THIRD CYCLE)
     Route: 065

REACTIONS (8)
  - Toxicity to various agents [Unknown]
  - Paronychia [Recovered/Resolved]
  - Myelosuppression [Unknown]
  - Anorectal disorder [Recovered/Resolved]
  - Febrile neutropenia [Recovered/Resolved]
  - Drug interaction [Unknown]
  - Asthenia [Recovered/Resolved]
  - Cytopenia [Unknown]
